FAERS Safety Report 7610672-6 (Version None)
Quarter: 2011Q3

REPORT INFORMATION
  Report Type: 
  Country: None (occurrence: None)
  Receive Date: 20110715
  Receipt Date: 20110712
  Transmission Date: 20111222
  Serious: Yes (Other)
  Sender: FDA-Public Use
  Company Number: US-PFIZER INC-2011157680

PATIENT
  Sex: Female

DRUGS (3)
  1. LIPITOR [Suspect]
     Dosage: UNK
     Dates: end: 20110710
  2. LIPITOR [Suspect]
     Dosage: 80 MG, 1X/DAY
  3. LIPITOR [Suspect]
     Dosage: 40 MG, 1X/DAY

REACTIONS (1)
  - ARTHROPATHY [None]
